FAERS Safety Report 19918094 (Version 1)
Quarter: 2021Q4

REPORT INFORMATION
  Report Type: Spontaneous
  Country: CA (occurrence: CA)
  Receive Date: 20211005
  Receipt Date: 20211005
  Transmission Date: 20220304
  Serious: Yes (Other)
  Sender: FDA-Public Use
  Company Number: CA-PFIZER INC-202101265809

PATIENT
  Age: 26 Year
  Sex: Female

DRUGS (3)
  1. METHOTREXATE [Suspect]
     Active Substance: METHOTREXATE
     Indication: Product used for unknown indication
     Route: 065
     Dates: start: 202103, end: 202106
  2. PLAQUENIL [Concomitant]
     Active Substance: HYDROXYCHLOROQUINE SULFATE
     Route: 065
     Dates: start: 202103
  3. PREDNISONE [Concomitant]
     Active Substance: PREDNISONE
     Indication: Pulmonary fibrosis
     Dosage: CURRENTLY WEANING AT 3 MG QD
     Route: 065

REACTIONS (2)
  - Drug intolerance [Unknown]
  - Pulmonary fibrosis [Unknown]
